FAERS Safety Report 24607875 (Version 1)
Quarter: 2024Q4

REPORT INFORMATION
  Report Type: Report from Study
  Country: CA (occurrence: CA)
  Receive Date: 20241112
  Receipt Date: 20241112
  Transmission Date: 20250115
  Serious: Yes (Other)
  Sender: TEVA
  Company Number: CA-TEVA-VS-3258908

PATIENT
  Age: 67 Year
  Sex: Female

DRUGS (9)
  1. CINQAIR [Suspect]
     Active Substance: RESLIZUMAB
     Indication: Asthma
     Route: 042
     Dates: start: 20170726, end: 20240326
  2. VENTOLIN [Concomitant]
     Active Substance: ALBUTEROL SULFATE
     Indication: Product used for unknown indication
     Dosage: 0-4 PUFFS WEEKS
     Route: 065
  3. ALVESCO [Concomitant]
     Active Substance: CICLESONIDE
     Indication: Product used for unknown indication
     Dosage: 200 2 PUFF
     Route: 065
  4. ZENHALE [Concomitant]
     Active Substance: FORMOTEROL FUMARATE\MOMETASONE FUROATE
     Indication: Product used for unknown indication
     Dosage: 200/5 2 PUFF, AS NEEDED
     Route: 065
  5. XOLAIR [Concomitant]
     Active Substance: OMALIZUMAB
     Indication: Product used for unknown indication
     Route: 065
  6. PREDNISONE [Concomitant]
     Active Substance: PREDNISONE
     Indication: Product used for unknown indication
     Route: 065
  7. COVID 19 [Concomitant]
     Indication: Product used for unknown indication
     Dosage: 2 DOSES
     Route: 065
  8. TEZSPIRE [Concomitant]
     Active Substance: TEZEPELUMAB-EKKO
     Indication: Product used for unknown indication
     Route: 065
     Dates: start: 202309
  9. GLYCOPYRROLATE [Concomitant]
     Active Substance: GLYCOPYRROLATE
     Indication: Product used for unknown indication
     Route: 065

REACTIONS (10)
  - Tricuspid valve incompetence [Unknown]
  - Asthma [Unknown]
  - Aortic valve incompetence [Unknown]
  - Mitral valve incompetence [Unknown]
  - Aortic stenosis [Unknown]
  - Mitral valve calcification [Unknown]
  - Sputum increased [Unknown]
  - Dyspnoea [Unknown]
  - Stress [Unknown]
  - Nasal congestion [Unknown]
